FAERS Safety Report 9108481 (Version 2)
Quarter: 2013Q1

REPORT INFORMATION
  Report Type: Spontaneous
  Country: GB (occurrence: GB)
  Receive Date: 20130222
  Receipt Date: 20130304
  Transmission Date: 20140127
  Serious: Yes (Death, Other)
  Sender: FDA-Public Use
  Company Number: GB-RANBAXY-2013RR-65338

PATIENT
  Sex: Male

DRUGS (4)
  1. SIMVASTATIN [Suspect]
     Indication: PRODUCT USED FOR UNKNOWN INDICATION
     Dosage: 40 MG, UNK
     Route: 065
     Dates: start: 2005
  2. ATORVASTATIN [Suspect]
     Indication: PRODUCT USED FOR UNKNOWN INDICATION
     Dosage: 40 MG, UNK
     Route: 065
  3. ATORVASTATIN [Suspect]
     Indication: PRODUCT USED FOR UNKNOWN INDICATION
     Dosage: 20 MG, UNK
     Route: 065
     Dates: start: 200708, end: 200804
  4. EZETIMIBE [Suspect]
     Indication: PRODUCT USED FOR UNKNOWN INDICATION
     Dosage: 10 MG, UNK
     Route: 065
     Dates: end: 200811

REACTIONS (15)
  - Motor neurone disease [Not Recovered/Not Resolved]
  - Myopathy [Not Recovered/Not Resolved]
  - Hepatic function abnormal [Unknown]
  - Anxiety [Unknown]
  - Alopecia [Unknown]
  - Depressed mood [Unknown]
  - Pollakiuria [Unknown]
  - Urine abnormality [Unknown]
  - Chromaturia [Unknown]
  - Decreased appetite [Unknown]
  - Mouth ulceration [Unknown]
  - Dry mouth [Unknown]
  - Feeling cold [Unknown]
  - Respiratory failure [Fatal]
  - Myocardial infarction [Fatal]
